FAERS Safety Report 4399807-9 (Version None)
Quarter: 2004Q3

REPORT INFORMATION
  Report Type: 
  Country: None (occurrence: None)
  Receive Date: 20040714
  Receipt Date: 20040701
  Transmission Date: 20050211
  Serious: Yes (Death)
  Sender: FDA-Public Use
  Company Number: 04P-144-0265619-00

PATIENT
  Age: 37 Year
  Sex: Male

DRUGS (3)
  1. KALETRA [Suspect]
     Indication: HIV INFECTION
     Dosage: PER ORAL
     Route: 048
     Dates: start: 20020919
  2. HERION (DIAMORPHINE) [Suspect]
  3. ZIDOVUDINE W/LAMIVUDINE [Concomitant]

REACTIONS (5)
  - ACCIDENT [None]
  - DEPRESSION [None]
  - INTENTIONAL SELF-INJURY [None]
  - OVERDOSE [None]
  - SUICIDE ATTEMPT [None]
